FAERS Safety Report 5872383-7 (Version None)
Quarter: 2008Q3

REPORT INFORMATION
  Report Type: 
  Country: None (occurrence: None)
  Receive Date: 20080905
  Receipt Date: 20080829
  Transmission Date: 20090109
  Serious: Yes (Other)
  Sender: FDA-Public Use
  Company Number: CA-JNJFOC-20080900637

PATIENT
  Sex: Female
  Weight: 52.16 kg

DRUGS (2)
  1. EXTRA STRENGTH TYLENOL [Suspect]
     Route: 048
  2. EXTRA STRENGTH TYLENOL [Suspect]
     Indication: DRUG USE FOR UNKNOWN INDICATION
     Dosage: 5000-8000 MG ONCE TOTAL, ORAL
     Route: 048

REACTIONS (4)
  - EATING DISORDER [None]
  - HYPERSOMNIA [None]
  - INTENTIONAL OVERDOSE [None]
  - WEIGHT DECREASED [None]
